FAERS Safety Report 23288095 (Version 2)
Quarter: 2024Q1

REPORT INFORMATION
  Report Type: Spontaneous
  Country: AE (occurrence: AE)
  Receive Date: 20231212
  Receipt Date: 20240103
  Transmission Date: 20240410
  Serious: Yes (Hospitalization)
  Sender: FDA-Public Use
  Company Number: AE-PFIZER INC-PV202300198838

PATIENT
  Age: 73 Year
  Sex: Male

DRUGS (2)
  1. SUTENT [Suspect]
     Active Substance: SUNITINIB MALATE
     Dosage: 50MG ONCE DAILY FOR 4 WEEKS, FOLLOWED BY TWO WEEKS OFF
     Route: 048
     Dates: start: 202209, end: 20231123
  2. SUTENT [Suspect]
     Active Substance: SUNITINIB MALATE
     Dosage: 37.5MG ONCE DAILY FOR 4 WEEKS, FOLLOWED BY TWO WEEKS OFF
     Route: 048

REACTIONS (1)
  - Cardiac disorder [Unknown]
